FAERS Safety Report 25143636 (Version 2)
Quarter: 2025Q3

REPORT INFORMATION
  Report Type: Spontaneous
  Country: CA (occurrence: CA)
  Receive Date: 20250401
  Receipt Date: 20250920
  Transmission Date: 20251020
  Serious: Yes (Other)
  Sender: SANDOZ
  Company Number: CA-002147023-NVSC2025CA046508

PATIENT
  Age: 53 Year
  Sex: Male

DRUGS (455)
  1. ALMOTRIPTAN [Suspect]
     Active Substance: ALMOTRIPTAN
     Indication: Product used for unknown indication
     Route: 065
  2. ACETAMINOPHEN [Suspect]
     Active Substance: ACETAMINOPHEN
     Indication: Migraine
     Route: 065
  3. ACETAMINOPHEN [Suspect]
     Active Substance: ACETAMINOPHEN
     Route: 065
  4. ACETAMINOPHEN [Suspect]
     Active Substance: ACETAMINOPHEN
     Route: 065
  5. AMITRIPTYLINE [Suspect]
     Active Substance: AMITRIPTYLINE
     Indication: Product used for unknown indication
     Route: 065
  6. BOTOX [Suspect]
     Active Substance: ONABOTULINUMTOXINA
     Route: 065
  7. BOTOX [Suspect]
     Active Substance: ONABOTULINUMTOXINA
     Route: 065
  8. BOTOX [Suspect]
     Active Substance: ONABOTULINUMTOXINA
     Route: 065
  9. BOTOX [Suspect]
     Active Substance: ONABOTULINUMTOXINA
     Route: 065
  10. BOTOX [Suspect]
     Active Substance: ONABOTULINUMTOXINA
     Route: 065
  11. BOTOX [Suspect]
     Active Substance: ONABOTULINUMTOXINA
     Route: 065
  12. BOTOX [Suspect]
     Active Substance: ONABOTULINUMTOXINA
     Route: 065
  13. BOTOX [Suspect]
     Active Substance: ONABOTULINUMTOXINA
     Route: 065
  14. BOTOX [Suspect]
     Active Substance: ONABOTULINUMTOXINA
     Route: 065
  15. BOTOX [Suspect]
     Active Substance: ONABOTULINUMTOXINA
     Route: 065
  16. BOTOX [Suspect]
     Active Substance: ONABOTULINUMTOXINA
     Route: 065
  17. BOTOX [Suspect]
     Active Substance: ONABOTULINUMTOXINA
     Route: 065
  18. BOTOX [Suspect]
     Active Substance: ONABOTULINUMTOXINA
     Route: 065
  19. BOTOX [Suspect]
     Active Substance: ONABOTULINUMTOXINA
     Route: 065
  20. BOTOX [Suspect]
     Active Substance: ONABOTULINUMTOXINA
     Route: 065
  21. BOTOX [Suspect]
     Active Substance: ONABOTULINUMTOXINA
     Route: 065
  22. BOTOX [Suspect]
     Active Substance: ONABOTULINUMTOXINA
     Route: 065
  23. BOTOX [Suspect]
     Active Substance: ONABOTULINUMTOXINA
     Route: 065
  24. BOTOX [Suspect]
     Active Substance: ONABOTULINUMTOXINA
     Route: 065
  25. BOTOX [Suspect]
     Active Substance: ONABOTULINUMTOXINA
     Route: 065
  26. BOTOX [Suspect]
     Active Substance: ONABOTULINUMTOXINA
     Route: 065
  27. BOTOX [Suspect]
     Active Substance: ONABOTULINUMTOXINA
     Route: 065
  28. BOTOX [Suspect]
     Active Substance: ONABOTULINUMTOXINA
     Route: 065
  29. BOTOX [Suspect]
     Active Substance: ONABOTULINUMTOXINA
     Route: 065
  30. BOTOX [Suspect]
     Active Substance: ONABOTULINUMTOXINA
     Route: 065
  31. BOTOX [Suspect]
     Active Substance: ONABOTULINUMTOXINA
     Route: 065
  32. BOTOX [Suspect]
     Active Substance: ONABOTULINUMTOXINA
     Route: 065
  33. BOTOX [Suspect]
     Active Substance: ONABOTULINUMTOXINA
     Route: 065
  34. BOTOX [Suspect]
     Active Substance: ONABOTULINUMTOXINA
     Route: 065
  35. BOTOX [Suspect]
     Active Substance: ONABOTULINUMTOXINA
     Route: 065
  36. BOTOX [Suspect]
     Active Substance: ONABOTULINUMTOXINA
     Route: 065
  37. BOTOX [Suspect]
     Active Substance: ONABOTULINUMTOXINA
     Route: 065
  38. BOTOX [Suspect]
     Active Substance: ONABOTULINUMTOXINA
     Route: 065
  39. BOTOX [Suspect]
     Active Substance: ONABOTULINUMTOXINA
     Route: 065
  40. BOTOX [Suspect]
     Active Substance: ONABOTULINUMTOXINA
     Route: 065
  41. BOTOX [Suspect]
     Active Substance: ONABOTULINUMTOXINA
     Route: 065
  42. BOTOX [Suspect]
     Active Substance: ONABOTULINUMTOXINA
     Route: 065
  43. BOTOX [Suspect]
     Active Substance: ONABOTULINUMTOXINA
     Route: 065
  44. BOTOX [Suspect]
     Active Substance: ONABOTULINUMTOXINA
     Route: 065
  45. BOTOX [Suspect]
     Active Substance: ONABOTULINUMTOXINA
     Route: 065
  46. BOTOX [Suspect]
     Active Substance: ONABOTULINUMTOXINA
     Route: 065
  47. BOTOX [Suspect]
     Active Substance: ONABOTULINUMTOXINA
     Route: 065
  48. BOTOX [Suspect]
     Active Substance: ONABOTULINUMTOXINA
     Route: 065
  49. BOTOX [Suspect]
     Active Substance: ONABOTULINUMTOXINA
     Route: 065
  50. BOTOX [Suspect]
     Active Substance: ONABOTULINUMTOXINA
     Route: 065
  51. BOTOX [Suspect]
     Active Substance: ONABOTULINUMTOXINA
     Route: 065
  52. BOTOX [Suspect]
     Active Substance: ONABOTULINUMTOXINA
     Route: 065
  53. BOTOX [Suspect]
     Active Substance: ONABOTULINUMTOXINA
     Route: 065
  54. BOTOX [Suspect]
     Active Substance: ONABOTULINUMTOXINA
     Route: 065
  55. BOTOX [Suspect]
     Active Substance: ONABOTULINUMTOXINA
     Route: 065
  56. BOTOX [Suspect]
     Active Substance: ONABOTULINUMTOXINA
     Route: 065
  57. BOTOX [Suspect]
     Active Substance: ONABOTULINUMTOXINA
     Route: 065
  58. BOTOX [Suspect]
     Active Substance: ONABOTULINUMTOXINA
     Route: 065
  59. BOTOX [Suspect]
     Active Substance: ONABOTULINUMTOXINA
     Route: 065
  60. BOTOX [Suspect]
     Active Substance: ONABOTULINUMTOXINA
     Route: 065
  61. BOTOX [Suspect]
     Active Substance: ONABOTULINUMTOXINA
     Route: 065
  62. BOTOX [Suspect]
     Active Substance: ONABOTULINUMTOXINA
     Route: 065
  63. BOTOX [Suspect]
     Active Substance: ONABOTULINUMTOXINA
     Route: 065
  64. BOTOX [Suspect]
     Active Substance: ONABOTULINUMTOXINA
     Route: 065
  65. BOTOX [Suspect]
     Active Substance: ONABOTULINUMTOXINA
     Route: 065
  66. BOTOX [Suspect]
     Active Substance: ONABOTULINUMTOXINA
     Route: 065
  67. BOTOX [Suspect]
     Active Substance: ONABOTULINUMTOXINA
     Route: 065
  68. BOTOX [Suspect]
     Active Substance: ONABOTULINUMTOXINA
     Route: 065
  69. BOTOX [Suspect]
     Active Substance: ONABOTULINUMTOXINA
     Route: 065
  70. BOTOX [Suspect]
     Active Substance: ONABOTULINUMTOXINA
     Route: 065
  71. BOTOX [Suspect]
     Active Substance: ONABOTULINUMTOXINA
     Route: 065
  72. BOTOX [Suspect]
     Active Substance: ONABOTULINUMTOXINA
     Route: 065
  73. BOTOX [Suspect]
     Active Substance: ONABOTULINUMTOXINA
     Route: 065
  74. BOTOX [Suspect]
     Active Substance: ONABOTULINUMTOXINA
     Route: 065
  75. BOTOX [Suspect]
     Active Substance: ONABOTULINUMTOXINA
     Route: 065
  76. BOTOX [Suspect]
     Active Substance: ONABOTULINUMTOXINA
     Route: 065
  77. BOTOX [Suspect]
     Active Substance: ONABOTULINUMTOXINA
     Route: 065
  78. BOTOX [Suspect]
     Active Substance: ONABOTULINUMTOXINA
     Route: 065
  79. BOTOX [Suspect]
     Active Substance: ONABOTULINUMTOXINA
     Route: 065
  80. BOTOX [Suspect]
     Active Substance: ONABOTULINUMTOXINA
     Route: 065
  81. BOTOX [Suspect]
     Active Substance: ONABOTULINUMTOXINA
     Route: 065
  82. BOTOX [Suspect]
     Active Substance: ONABOTULINUMTOXINA
     Route: 065
  83. BOTOX [Suspect]
     Active Substance: ONABOTULINUMTOXINA
     Route: 065
  84. BOTOX [Suspect]
     Active Substance: ONABOTULINUMTOXINA
     Route: 065
  85. BOTOX [Suspect]
     Active Substance: ONABOTULINUMTOXINA
     Route: 065
  86. BOTOX [Suspect]
     Active Substance: ONABOTULINUMTOXINA
     Route: 065
  87. BOTOX [Suspect]
     Active Substance: ONABOTULINUMTOXINA
     Route: 065
  88. BOTOX [Suspect]
     Active Substance: ONABOTULINUMTOXINA
     Route: 065
  89. BOTOX [Suspect]
     Active Substance: ONABOTULINUMTOXINA
     Route: 065
  90. BOTOX [Suspect]
     Active Substance: ONABOTULINUMTOXINA
     Route: 065
  91. BOTOX [Suspect]
     Active Substance: ONABOTULINUMTOXINA
     Route: 065
  92. BOTOX [Suspect]
     Active Substance: ONABOTULINUMTOXINA
     Route: 065
  93. BOTOX [Suspect]
     Active Substance: ONABOTULINUMTOXINA
     Route: 065
  94. BOTOX [Suspect]
     Active Substance: ONABOTULINUMTOXINA
     Route: 065
  95. BOTOX [Suspect]
     Active Substance: ONABOTULINUMTOXINA
     Route: 065
  96. BOTOX [Suspect]
     Active Substance: ONABOTULINUMTOXINA
     Route: 065
  97. BOTOX [Suspect]
     Active Substance: ONABOTULINUMTOXINA
     Route: 065
  98. BOTOX [Suspect]
     Active Substance: ONABOTULINUMTOXINA
     Route: 065
  99. BOTOX [Suspect]
     Active Substance: ONABOTULINUMTOXINA
     Route: 065
  100. BOTOX [Suspect]
     Active Substance: ONABOTULINUMTOXINA
     Route: 065
  101. BOTOX [Suspect]
     Active Substance: ONABOTULINUMTOXINA
     Route: 065
  102. BOTOX [Suspect]
     Active Substance: ONABOTULINUMTOXINA
     Route: 065
  103. BOTOX [Suspect]
     Active Substance: ONABOTULINUMTOXINA
     Route: 065
  104. BOTOX [Suspect]
     Active Substance: ONABOTULINUMTOXINA
     Route: 065
  105. BOTOX [Suspect]
     Active Substance: ONABOTULINUMTOXINA
     Route: 065
  106. BOTOX [Suspect]
     Active Substance: ONABOTULINUMTOXINA
     Route: 065
  107. BOTOX [Suspect]
     Active Substance: ONABOTULINUMTOXINA
     Route: 065
  108. BOTOX [Suspect]
     Active Substance: ONABOTULINUMTOXINA
     Route: 065
  109. BOTOX [Suspect]
     Active Substance: ONABOTULINUMTOXINA
     Route: 065
  110. BOTOX [Suspect]
     Active Substance: ONABOTULINUMTOXINA
     Route: 065
  111. BOTOX [Suspect]
     Active Substance: ONABOTULINUMTOXINA
     Route: 065
  112. BOTOX [Suspect]
     Active Substance: ONABOTULINUMTOXINA
     Route: 065
  113. BOTOX [Suspect]
     Active Substance: ONABOTULINUMTOXINA
     Route: 065
  114. BOTOX [Suspect]
     Active Substance: ONABOTULINUMTOXINA
     Route: 065
  115. BOTOX [Suspect]
     Active Substance: ONABOTULINUMTOXINA
     Route: 065
  116. BOTOX [Suspect]
     Active Substance: ONABOTULINUMTOXINA
     Route: 065
  117. BOTOX [Suspect]
     Active Substance: ONABOTULINUMTOXINA
     Route: 065
  118. BOTOX [Suspect]
     Active Substance: ONABOTULINUMTOXINA
     Route: 065
  119. BOTOX [Suspect]
     Active Substance: ONABOTULINUMTOXINA
     Route: 065
  120. BOTOX [Suspect]
     Active Substance: ONABOTULINUMTOXINA
     Route: 065
  121. BOTOX [Suspect]
     Active Substance: ONABOTULINUMTOXINA
     Route: 065
  122. BOTOX [Suspect]
     Active Substance: ONABOTULINUMTOXINA
     Route: 065
  123. BOTOX [Suspect]
     Active Substance: ONABOTULINUMTOXINA
     Route: 065
  124. BOTOX [Suspect]
     Active Substance: ONABOTULINUMTOXINA
     Route: 065
  125. BOTOX [Suspect]
     Active Substance: ONABOTULINUMTOXINA
     Route: 065
  126. BOTOX [Suspect]
     Active Substance: ONABOTULINUMTOXINA
     Route: 065
  127. BOTOX [Suspect]
     Active Substance: ONABOTULINUMTOXINA
     Route: 065
  128. BOTOX [Suspect]
     Active Substance: ONABOTULINUMTOXINA
     Route: 065
  129. BOTOX [Suspect]
     Active Substance: ONABOTULINUMTOXINA
     Route: 065
  130. BOTOX [Suspect]
     Active Substance: ONABOTULINUMTOXINA
     Route: 065
  131. BOTOX [Suspect]
     Active Substance: ONABOTULINUMTOXINA
     Route: 065
  132. BOTOX [Suspect]
     Active Substance: ONABOTULINUMTOXINA
     Route: 065
  133. BOTOX [Suspect]
     Active Substance: ONABOTULINUMTOXINA
     Route: 065
  134. BOTOX [Suspect]
     Active Substance: ONABOTULINUMTOXINA
     Route: 065
  135. BOTOX [Suspect]
     Active Substance: ONABOTULINUMTOXINA
     Route: 065
  136. BOTOX [Suspect]
     Active Substance: ONABOTULINUMTOXINA
     Route: 065
  137. BOTOX [Suspect]
     Active Substance: ONABOTULINUMTOXINA
     Route: 065
  138. BOTOX [Suspect]
     Active Substance: ONABOTULINUMTOXINA
     Route: 065
  139. BOTOX [Suspect]
     Active Substance: ONABOTULINUMTOXINA
     Route: 065
  140. BOTOX [Suspect]
     Active Substance: ONABOTULINUMTOXINA
     Route: 065
  141. BOTOX [Suspect]
     Active Substance: ONABOTULINUMTOXINA
     Route: 065
  142. BOTOX [Suspect]
     Active Substance: ONABOTULINUMTOXINA
     Route: 065
  143. BOTOX [Suspect]
     Active Substance: ONABOTULINUMTOXINA
     Route: 065
  144. BOTOX [Suspect]
     Active Substance: ONABOTULINUMTOXINA
     Indication: Product used for unknown indication
     Route: 030
  145. BOTOX [Suspect]
     Active Substance: ONABOTULINUMTOXINA
     Indication: Product used for unknown indication
     Route: 065
  146. BOTOX [Suspect]
     Active Substance: ONABOTULINUMTOXINA
     Indication: Product used for unknown indication
     Route: 065
  147. BOTOX [Suspect]
     Active Substance: ONABOTULINUMTOXINA
     Route: 065
  148. BOTOX [Suspect]
     Active Substance: ONABOTULINUMTOXINA
     Route: 065
  149. BOTOX [Suspect]
     Active Substance: ONABOTULINUMTOXINA
     Route: 065
  150. CELECOXIB [Suspect]
     Active Substance: CELECOXIB
     Indication: Product used for unknown indication
     Route: 065
  151. CELECOXIB [Suspect]
     Active Substance: CELECOXIB
     Route: 065
  152. CELECOXIB [Suspect]
     Active Substance: CELECOXIB
     Route: 065
  153. CELECOXIB [Suspect]
     Active Substance: CELECOXIB
     Route: 065
  154. CELECOXIB [Suspect]
     Active Substance: CELECOXIB
     Route: 065
  155. CELECOXIB [Suspect]
     Active Substance: CELECOXIB
     Route: 065
  156. CODEINE [Suspect]
     Active Substance: CODEINE
     Indication: Migraine
     Route: 065
  157. CODEINE [Suspect]
     Active Substance: CODEINE
     Route: 065
  158. CODEINE [Suspect]
     Active Substance: CODEINE
     Route: 065
  159. CODEINE [Suspect]
     Active Substance: CODEINE
     Route: 065
  160. CODEINE [Suspect]
     Active Substance: CODEINE
     Route: 065
  161. CODEINE [Suspect]
     Active Substance: CODEINE
     Route: 065
  162. CODEINE [Suspect]
     Active Substance: CODEINE
     Route: 065
  163. DICLOFENAC SODIUM [Suspect]
     Active Substance: DICLOFENAC SODIUM
     Indication: Arthralgia
     Route: 065
  164. DICLOFENAC SODIUM [Suspect]
     Active Substance: DICLOFENAC SODIUM
     Indication: Migraine
     Route: 065
  165. DICLOFENAC SODIUM [Suspect]
     Active Substance: DICLOFENAC SODIUM
     Route: 065
  166. DICLOFENAC SODIUM [Suspect]
     Active Substance: DICLOFENAC SODIUM
     Route: 065
  167. DICLOFENAC SODIUM [Suspect]
     Active Substance: DICLOFENAC SODIUM
     Route: 065
  168. DULOXETINE [Suspect]
     Active Substance: DULOXETINE
     Indication: Migraine
     Route: 065
  169. DULOXETINE [Suspect]
     Active Substance: DULOXETINE
     Indication: Migraine
     Route: 065
  170. DULOXETINE [Suspect]
     Active Substance: DULOXETINE
     Route: 065
  171. DULOXETINE [Suspect]
     Active Substance: DULOXETINE
     Route: 065
  172. DULOXETINE [Suspect]
     Active Substance: DULOXETINE
     Route: 065
  173. DULOXETINE [Suspect]
     Active Substance: DULOXETINE
     Route: 065
  174. DULOXETINE [Suspect]
     Active Substance: DULOXETINE
     Route: 065
  175. DULOXETINE [Suspect]
     Active Substance: DULOXETINE
     Route: 065
  176. DULOXETINE [Suspect]
     Active Substance: DULOXETINE
     Route: 065
  177. DULOXETINE [Suspect]
     Active Substance: DULOXETINE
     Route: 065
  178. DULOXETINE [Suspect]
     Active Substance: DULOXETINE
     Route: 065
  179. DULOXETINE [Suspect]
     Active Substance: DULOXETINE
     Route: 065
  180. DULOXETINE [Suspect]
     Active Substance: DULOXETINE
     Route: 065
  181. DULOXETINE [Suspect]
     Active Substance: DULOXETINE
     Route: 065
  182. DULOXETINE [Suspect]
     Active Substance: DULOXETINE
     Route: 065
  183. DULOXETINE [Suspect]
     Active Substance: DULOXETINE
     Route: 065
  184. DULOXETINE [Suspect]
     Active Substance: DULOXETINE
     Route: 065
  185. DULOXETINE [Suspect]
     Active Substance: DULOXETINE
     Route: 065
  186. DULOXETINE [Suspect]
     Active Substance: DULOXETINE
     Route: 065
  187. DULOXETINE [Suspect]
     Active Substance: DULOXETINE
     Route: 065
  188. DULOXETINE [Suspect]
     Active Substance: DULOXETINE
     Route: 065
  189. DULOXETINE [Suspect]
     Active Substance: DULOXETINE
     Route: 065
  190. DULOXETINE [Suspect]
     Active Substance: DULOXETINE
     Route: 065
  191. DULOXETINE [Suspect]
     Active Substance: DULOXETINE
     Route: 065
  192. DULOXETINE [Suspect]
     Active Substance: DULOXETINE
     Route: 065
  193. DULOXETINE [Suspect]
     Active Substance: DULOXETINE
     Route: 065
  194. DULOXETINE [Suspect]
     Active Substance: DULOXETINE
     Route: 065
  195. DULOXETINE [Suspect]
     Active Substance: DULOXETINE
     Route: 065
  196. DULOXETINE [Suspect]
     Active Substance: DULOXETINE
     Route: 065
  197. DULOXETINE [Suspect]
     Active Substance: DULOXETINE
     Route: 065
  198. DULOXETINE [Suspect]
     Active Substance: DULOXETINE
     Route: 065
  199. DULOXETINE [Suspect]
     Active Substance: DULOXETINE
     Route: 065
  200. DULOXETINE [Suspect]
     Active Substance: DULOXETINE
     Route: 065
  201. DULOXETINE [Suspect]
     Active Substance: DULOXETINE
     Route: 065
  202. DULOXETINE [Suspect]
     Active Substance: DULOXETINE
     Route: 065
  203. DULOXETINE [Suspect]
     Active Substance: DULOXETINE
     Route: 065
  204. DULOXETINE [Suspect]
     Active Substance: DULOXETINE
     Route: 065
  205. DULOXETINE [Suspect]
     Active Substance: DULOXETINE
     Route: 065
  206. DULOXETINE [Suspect]
     Active Substance: DULOXETINE
     Route: 065
  207. DULOXETINE [Suspect]
     Active Substance: DULOXETINE
     Route: 065
  208. DULOXETINE [Suspect]
     Active Substance: DULOXETINE
     Route: 065
  209. DULOXETINE [Suspect]
     Active Substance: DULOXETINE
     Route: 065
  210. DULOXETINE [Suspect]
     Active Substance: DULOXETINE
     Route: 065
  211. DULOXETINE [Suspect]
     Active Substance: DULOXETINE
     Route: 065
  212. DULOXETINE [Suspect]
     Active Substance: DULOXETINE
     Route: 065
  213. DULOXETINE [Suspect]
     Active Substance: DULOXETINE
     Route: 065
  214. DULOXETINE [Suspect]
     Active Substance: DULOXETINE
     Route: 065
  215. DULOXETINE [Suspect]
     Active Substance: DULOXETINE
     Route: 065
  216. DULOXETINE [Suspect]
     Active Substance: DULOXETINE
     Route: 065
  217. DULOXETINE [Suspect]
     Active Substance: DULOXETINE
     Route: 065
  218. DULOXETINE [Suspect]
     Active Substance: DULOXETINE
     Route: 065
  219. DULOXETINE [Suspect]
     Active Substance: DULOXETINE
     Route: 065
  220. DULOXETINE [Suspect]
     Active Substance: DULOXETINE
     Route: 065
  221. DULOXETINE [Suspect]
     Active Substance: DULOXETINE
     Route: 065
  222. DULOXETINE [Suspect]
     Active Substance: DULOXETINE
     Route: 065
  223. DULOXETINE [Suspect]
     Active Substance: DULOXETINE
     Route: 065
  224. DULOXETINE [Suspect]
     Active Substance: DULOXETINE
     Route: 065
  225. DULOXETINE [Suspect]
     Active Substance: DULOXETINE
     Route: 065
  226. DULOXETINE [Suspect]
     Active Substance: DULOXETINE
     Route: 065
  227. DULOXETINE [Suspect]
     Active Substance: DULOXETINE
     Route: 065
  228. DULOXETINE [Suspect]
     Active Substance: DULOXETINE
     Route: 065
  229. DULOXETINE [Suspect]
     Active Substance: DULOXETINE
     Route: 065
  230. DULOXETINE [Suspect]
     Active Substance: DULOXETINE
     Route: 065
  231. DULOXETINE [Suspect]
     Active Substance: DULOXETINE
     Route: 065
  232. DULOXETINE [Suspect]
     Active Substance: DULOXETINE
     Route: 065
  233. DULOXETINE [Suspect]
     Active Substance: DULOXETINE
     Route: 065
  234. DULOXETINE [Suspect]
     Active Substance: DULOXETINE
     Route: 065
  235. DULOXETINE [Suspect]
     Active Substance: DULOXETINE
     Route: 065
  236. DULOXETINE [Suspect]
     Active Substance: DULOXETINE
     Route: 065
  237. DULOXETINE [Suspect]
     Active Substance: DULOXETINE
     Route: 065
  238. DULOXETINE [Suspect]
     Active Substance: DULOXETINE
     Route: 065
  239. DULOXETINE [Suspect]
     Active Substance: DULOXETINE
     Route: 065
  240. DULOXETINE [Suspect]
     Active Substance: DULOXETINE
     Route: 065
  241. DULOXETINE [Suspect]
     Active Substance: DULOXETINE
     Route: 065
  242. DULOXETINE [Suspect]
     Active Substance: DULOXETINE
     Route: 065
  243. DULOXETINE [Suspect]
     Active Substance: DULOXETINE
     Route: 065
  244. DULOXETINE [Suspect]
     Active Substance: DULOXETINE
     Route: 065
  245. DULOXETINE [Suspect]
     Active Substance: DULOXETINE
     Route: 065
  246. DULOXETINE [Suspect]
     Active Substance: DULOXETINE
     Route: 065
  247. DULOXETINE [Suspect]
     Active Substance: DULOXETINE
     Route: 065
  248. DULOXETINE [Suspect]
     Active Substance: DULOXETINE
     Route: 065
  249. DULOXETINE [Suspect]
     Active Substance: DULOXETINE
     Route: 065
  250. DULOXETINE [Suspect]
     Active Substance: DULOXETINE
     Route: 065
  251. DULOXETINE [Suspect]
     Active Substance: DULOXETINE
     Route: 065
  252. DULOXETINE [Suspect]
     Active Substance: DULOXETINE
     Route: 065
  253. DULOXETINE [Suspect]
     Active Substance: DULOXETINE
     Route: 065
  254. DULOXETINE [Suspect]
     Active Substance: DULOXETINE
     Route: 065
  255. DULOXETINE [Suspect]
     Active Substance: DULOXETINE
     Route: 065
  256. DULOXETINE [Suspect]
     Active Substance: DULOXETINE
     Route: 065
  257. DULOXETINE [Suspect]
     Active Substance: DULOXETINE
     Route: 065
  258. DULOXETINE [Suspect]
     Active Substance: DULOXETINE
     Route: 065
  259. DULOXETINE [Suspect]
     Active Substance: DULOXETINE
     Route: 065
  260. DULOXETINE [Suspect]
     Active Substance: DULOXETINE
     Route: 065
  261. DULOXETINE [Suspect]
     Active Substance: DULOXETINE
     Route: 065
  262. DULOXETINE [Suspect]
     Active Substance: DULOXETINE
     Route: 065
  263. DULOXETINE [Suspect]
     Active Substance: DULOXETINE
     Route: 065
  264. DULOXETINE [Suspect]
     Active Substance: DULOXETINE
     Route: 065
  265. DEMEROL [Suspect]
     Active Substance: MEPERIDINE HYDROCHLORIDE
     Indication: Product used for unknown indication
     Route: 065
  266. DIHYDROERGOTAMINE [Suspect]
     Active Substance: DIHYDROERGOTAMINE
     Indication: Migraine
     Route: 065
  267. DIHYDROERGOTAMINE MESYLATE [Suspect]
     Active Substance: DIHYDROERGOTAMINE MESYLATE
     Indication: Migraine
     Route: 065
  268. ESOMEPRAZOLE [Suspect]
     Active Substance: ESOMEPRAZOLE
     Indication: Product used for unknown indication
     Route: 065
  269. ENDOCET [Suspect]
     Active Substance: ACETAMINOPHEN\OXYCODONE HYDROCHLORIDE
     Indication: Migraine
     Route: 065
  270. ENDOCET [Suspect]
     Active Substance: ACETAMINOPHEN\OXYCODONE HYDROCHLORIDE
     Route: 065
  271. ENDOCET [Suspect]
     Active Substance: ACETAMINOPHEN\OXYCODONE HYDROCHLORIDE
     Route: 065
  272. ESOMEPRAZOLE MAGNESIUM\NAPROXEN [Suspect]
     Active Substance: ESOMEPRAZOLE MAGNESIUM\NAPROXEN
     Indication: Product used for unknown indication
     Route: 065
  273. ESOMEPRAZOLE MAGNESIUM\NAPROXEN [Suspect]
     Active Substance: ESOMEPRAZOLE MAGNESIUM\NAPROXEN
     Route: 065
  274. ESOMEPRAZOLE MAGNESIUM\NAPROXEN [Suspect]
     Active Substance: ESOMEPRAZOLE MAGNESIUM\NAPROXEN
     Route: 065
  275. GABAPENTIN [Suspect]
     Active Substance: GABAPENTIN
     Indication: Product used for unknown indication
     Route: 065
  276. GABAPENTIN [Suspect]
     Active Substance: GABAPENTIN
     Route: 065
  277. GABAPENTIN [Suspect]
     Active Substance: GABAPENTIN
     Route: 065
  278. HYDROMORPHONE [Suspect]
     Active Substance: HYDROMORPHONE
     Indication: Product used for unknown indication
     Route: 065
  279. HYDROMORPHONE [Suspect]
     Active Substance: HYDROMORPHONE
     Indication: Migraine
  280. IBUPROFEN [Suspect]
     Active Substance: IBUPROFEN
     Indication: Product used for unknown indication
     Route: 065
  281. IBUPROFEN [Suspect]
     Active Substance: IBUPROFEN
     Route: 065
  282. IBUPROFEN [Suspect]
     Active Substance: IBUPROFEN
     Route: 065
  283. IBUPROFEN [Suspect]
     Active Substance: IBUPROFEN
     Route: 065
  284. KETAMINE HYDROCHLORIDE [Suspect]
     Active Substance: KETAMINE HYDROCHLORIDE
     Indication: Migraine
     Route: 065
  285. KETAMINE HYDROCHLORIDE [Suspect]
     Active Substance: KETAMINE HYDROCHLORIDE
     Route: 065
  286. KETAMINE HYDROCHLORIDE [Suspect]
     Active Substance: KETAMINE HYDROCHLORIDE
     Route: 065
  287. KETAMINE HYDROCHLORIDE [Suspect]
     Active Substance: KETAMINE HYDROCHLORIDE
     Route: 065
  288. KETAMINE HYDROCHLORIDE [Suspect]
     Active Substance: KETAMINE HYDROCHLORIDE
     Route: 065
  289. KETAMINE HYDROCHLORIDE [Suspect]
     Active Substance: KETAMINE HYDROCHLORIDE
     Route: 065
  290. MORPHINE SULFATE [Suspect]
     Active Substance: MORPHINE SULFATE
     Indication: Migraine
     Route: 065
  291. MORPHINE SULFATE [Suspect]
     Active Substance: MORPHINE SULFATE
     Route: 065
  292. MORPHINE SULFATE [Suspect]
     Active Substance: MORPHINE SULFATE
     Route: 065
  293. MAXALT [Suspect]
     Active Substance: RIZATRIPTAN BENZOATE
     Indication: Product used for unknown indication
     Route: 065
  294. NAPROXEN [Suspect]
     Active Substance: NAPROXEN
     Indication: Product used for unknown indication
     Route: 065
  295. NAPROXEN [Suspect]
     Active Substance: NAPROXEN
     Route: 065
  296. NAPROXEN [Suspect]
     Active Substance: NAPROXEN
     Route: 065
  297. NORTRIPTYLINE HYDROCHLORIDE [Suspect]
     Active Substance: NORTRIPTYLINE HYDROCHLORIDE
     Indication: Product used for unknown indication
     Route: 065
  298. NORTRIPTYLINE HYDROCHLORIDE [Suspect]
     Active Substance: NORTRIPTYLINE HYDROCHLORIDE
     Route: 065
  299. NORTRIPTYLINE HYDROCHLORIDE [Suspect]
     Active Substance: NORTRIPTYLINE HYDROCHLORIDE
     Route: 065
  300. ONDANSETRON [Suspect]
     Active Substance: ONDANSETRON
     Indication: Migraine
     Route: 065
  301. ONDANSETRON [Suspect]
     Active Substance: ONDANSETRON
     Route: 065
  302. ONDANSETRON [Suspect]
     Active Substance: ONDANSETRON
     Route: 065
  303. ONDANSETRON [Suspect]
     Active Substance: ONDANSETRON
     Route: 065
  304. ONDANSETRON [Suspect]
     Active Substance: ONDANSETRON
     Route: 065
  305. ONDANSETRON [Suspect]
     Active Substance: ONDANSETRON
     Route: 065
  306. ONDANSETRON [Suspect]
     Active Substance: ONDANSETRON
     Route: 065
  307. ONDANSETRON [Suspect]
     Active Substance: ONDANSETRON
     Route: 065
  308. ONDANSETRON [Suspect]
     Active Substance: ONDANSETRON
     Route: 065
  309. ONDANSETRON [Suspect]
     Active Substance: ONDANSETRON
     Route: 065
  310. ONDANSETRON [Suspect]
     Active Substance: ONDANSETRON
     Route: 065
  311. OXYCODONE HYDROCHLORIDE [Suspect]
     Active Substance: OXYCODONE HYDROCHLORIDE
     Indication: Migraine
     Route: 048
  312. PROPRANOLOL HYDROCHLORIDE [Suspect]
     Active Substance: PROPRANOLOL HYDROCHLORIDE
     Indication: Migraine
     Route: 065
  313. PROPRANOLOL HYDROCHLORIDE [Suspect]
     Active Substance: PROPRANOLOL HYDROCHLORIDE
     Indication: Product used for unknown indication
     Route: 065
  314. PROPRANOLOL HYDROCHLORIDE [Suspect]
     Active Substance: PROPRANOLOL HYDROCHLORIDE
     Route: 065
  315. PROPRANOLOL HYDROCHLORIDE [Suspect]
     Active Substance: PROPRANOLOL HYDROCHLORIDE
     Route: 065
  316. TENORETIC [Suspect]
     Active Substance: ATENOLOL\CHLORTHALIDONE
     Indication: Product used for unknown indication
     Route: 065
  317. TENORETIC [Suspect]
     Active Substance: ATENOLOL\CHLORTHALIDONE
     Route: 065
  318. TENORETIC [Suspect]
     Active Substance: ATENOLOL\CHLORTHALIDONE
     Route: 065
  319. TENORETIC [Suspect]
     Active Substance: ATENOLOL\CHLORTHALIDONE
     Route: 065
  320. TENORETIC [Suspect]
     Active Substance: ATENOLOL\CHLORTHALIDONE
     Route: 065
  321. TENORETIC [Suspect]
     Active Substance: ATENOLOL\CHLORTHALIDONE
     Route: 065
  322. TENORETIC [Suspect]
     Active Substance: ATENOLOL\CHLORTHALIDONE
     Route: 065
  323. TENORETIC [Suspect]
     Active Substance: ATENOLOL\CHLORTHALIDONE
     Route: 065
  324. TENORETIC [Suspect]
     Active Substance: ATENOLOL\CHLORTHALIDONE
     Route: 065
  325. TENORETIC [Suspect]
     Active Substance: ATENOLOL\CHLORTHALIDONE
     Route: 065
  326. TENORETIC [Suspect]
     Active Substance: ATENOLOL\CHLORTHALIDONE
     Route: 065
  327. TENORETIC [Suspect]
     Active Substance: ATENOLOL\CHLORTHALIDONE
     Route: 065
  328. TENORETIC [Suspect]
     Active Substance: ATENOLOL\CHLORTHALIDONE
     Route: 065
  329. TENORETIC [Suspect]
     Active Substance: ATENOLOL\CHLORTHALIDONE
     Route: 065
  330. TENORETIC [Suspect]
     Active Substance: ATENOLOL\CHLORTHALIDONE
     Route: 065
  331. TENORETIC [Suspect]
     Active Substance: ATENOLOL\CHLORTHALIDONE
     Route: 065
  332. TENORETIC [Suspect]
     Active Substance: ATENOLOL\CHLORTHALIDONE
     Route: 065
  333. TENORETIC [Suspect]
     Active Substance: ATENOLOL\CHLORTHALIDONE
     Route: 065
  334. TENORETIC [Suspect]
     Active Substance: ATENOLOL\CHLORTHALIDONE
     Route: 065
  335. TENORETIC [Suspect]
     Active Substance: ATENOLOL\CHLORTHALIDONE
     Route: 065
  336. TENORETIC [Suspect]
     Active Substance: ATENOLOL\CHLORTHALIDONE
     Route: 065
  337. TENORETIC [Suspect]
     Active Substance: ATENOLOL\CHLORTHALIDONE
     Route: 065
  338. TENORETIC [Suspect]
     Active Substance: ATENOLOL\CHLORTHALIDONE
     Route: 065
  339. TENORETIC [Suspect]
     Active Substance: ATENOLOL\CHLORTHALIDONE
     Route: 065
  340. TENORETIC [Suspect]
     Active Substance: ATENOLOL\CHLORTHALIDONE
     Route: 065
  341. TENORETIC [Suspect]
     Active Substance: ATENOLOL\CHLORTHALIDONE
     Route: 065
  342. TENORETIC [Suspect]
     Active Substance: ATENOLOL\CHLORTHALIDONE
     Route: 065
  343. TENORETIC [Suspect]
     Active Substance: ATENOLOL\CHLORTHALIDONE
     Route: 065
  344. TENORETIC [Suspect]
     Active Substance: ATENOLOL\CHLORTHALIDONE
     Route: 065
  345. TENORETIC [Suspect]
     Active Substance: ATENOLOL\CHLORTHALIDONE
     Route: 065
  346. TENORETIC [Suspect]
     Active Substance: ATENOLOL\CHLORTHALIDONE
     Route: 065
  347. TENORETIC [Suspect]
     Active Substance: ATENOLOL\CHLORTHALIDONE
     Route: 065
  348. TENORETIC [Suspect]
     Active Substance: ATENOLOL\CHLORTHALIDONE
     Route: 065
  349. TENORETIC [Suspect]
     Active Substance: ATENOLOL\CHLORTHALIDONE
     Route: 065
  350. TENORETIC [Suspect]
     Active Substance: ATENOLOL\CHLORTHALIDONE
     Route: 065
  351. TENORETIC [Suspect]
     Active Substance: ATENOLOL\CHLORTHALIDONE
     Route: 065
  352. TENORETIC [Suspect]
     Active Substance: ATENOLOL\CHLORTHALIDONE
     Route: 065
  353. TENORETIC [Suspect]
     Active Substance: ATENOLOL\CHLORTHALIDONE
     Route: 065
  354. TENORETIC [Suspect]
     Active Substance: ATENOLOL\CHLORTHALIDONE
     Route: 065
  355. TENORETIC [Suspect]
     Active Substance: ATENOLOL\CHLORTHALIDONE
     Route: 065
  356. TENORETIC [Suspect]
     Active Substance: ATENOLOL\CHLORTHALIDONE
     Route: 065
  357. TENORETIC [Suspect]
     Active Substance: ATENOLOL\CHLORTHALIDONE
     Route: 065
  358. TENORETIC [Suspect]
     Active Substance: ATENOLOL\CHLORTHALIDONE
     Route: 065
  359. TENORETIC [Suspect]
     Active Substance: ATENOLOL\CHLORTHALIDONE
     Route: 065
  360. TENORETIC [Suspect]
     Active Substance: ATENOLOL\CHLORTHALIDONE
     Route: 065
  361. TENORETIC [Suspect]
     Active Substance: ATENOLOL\CHLORTHALIDONE
     Route: 065
  362. TENORETIC [Suspect]
     Active Substance: ATENOLOL\CHLORTHALIDONE
     Route: 065
  363. TENORETIC [Suspect]
     Active Substance: ATENOLOL\CHLORTHALIDONE
     Route: 065
  364. TENORETIC [Suspect]
     Active Substance: ATENOLOL\CHLORTHALIDONE
     Route: 065
  365. TENORETIC [Suspect]
     Active Substance: ATENOLOL\CHLORTHALIDONE
     Route: 065
  366. TENORETIC [Suspect]
     Active Substance: ATENOLOL\CHLORTHALIDONE
     Route: 048
  367. TENORETIC [Suspect]
     Active Substance: ATENOLOL\CHLORTHALIDONE
     Indication: Product used for unknown indication
     Route: 065
  368. TENORETIC [Suspect]
     Active Substance: ATENOLOL\CHLORTHALIDONE
     Route: 065
  369. TENORETIC [Suspect]
     Active Substance: ATENOLOL\CHLORTHALIDONE
     Route: 065
  370. TENORETIC [Suspect]
     Active Substance: ATENOLOL\CHLORTHALIDONE
     Route: 065
  371. TENORETIC [Suspect]
     Active Substance: ATENOLOL\CHLORTHALIDONE
     Route: 065
  372. TENORETIC [Suspect]
     Active Substance: ATENOLOL\CHLORTHALIDONE
     Route: 065
  373. TENORETIC [Suspect]
     Active Substance: ATENOLOL\CHLORTHALIDONE
     Route: 065
  374. TENORETIC [Suspect]
     Active Substance: ATENOLOL\CHLORTHALIDONE
     Route: 065
  375. TENORETIC [Suspect]
     Active Substance: ATENOLOL\CHLORTHALIDONE
     Route: 065
  376. TENORETIC [Suspect]
     Active Substance: ATENOLOL\CHLORTHALIDONE
     Route: 065
  377. TENORETIC [Suspect]
     Active Substance: ATENOLOL\CHLORTHALIDONE
     Route: 065
  378. TENORETIC [Suspect]
     Active Substance: ATENOLOL\CHLORTHALIDONE
     Route: 065
  379. TENORETIC [Suspect]
     Active Substance: ATENOLOL\CHLORTHALIDONE
     Route: 065
  380. TENORETIC [Suspect]
     Active Substance: ATENOLOL\CHLORTHALIDONE
     Route: 065
  381. TENORETIC [Suspect]
     Active Substance: ATENOLOL\CHLORTHALIDONE
     Route: 065
  382. TENORETIC [Suspect]
     Active Substance: ATENOLOL\CHLORTHALIDONE
     Route: 065
  383. TENORETIC [Suspect]
     Active Substance: ATENOLOL\CHLORTHALIDONE
     Route: 065
  384. TENORETIC [Suspect]
     Active Substance: ATENOLOL\CHLORTHALIDONE
     Route: 065
  385. TENORETIC [Suspect]
     Active Substance: ATENOLOL\CHLORTHALIDONE
     Route: 065
  386. TENORETIC [Suspect]
     Active Substance: ATENOLOL\CHLORTHALIDONE
     Route: 065
  387. TENORETIC [Suspect]
     Active Substance: ATENOLOL\CHLORTHALIDONE
     Route: 065
  388. TENORETIC [Suspect]
     Active Substance: ATENOLOL\CHLORTHALIDONE
     Route: 065
  389. TENORETIC [Suspect]
     Active Substance: ATENOLOL\CHLORTHALIDONE
     Route: 065
  390. TENORETIC [Suspect]
     Active Substance: ATENOLOL\CHLORTHALIDONE
     Route: 065
  391. TENORETIC [Suspect]
     Active Substance: ATENOLOL\CHLORTHALIDONE
     Route: 065
  392. TENORETIC [Suspect]
     Active Substance: ATENOLOL\CHLORTHALIDONE
     Route: 065
  393. TENORETIC [Suspect]
     Active Substance: ATENOLOL\CHLORTHALIDONE
     Route: 065
  394. TENORETIC [Suspect]
     Active Substance: ATENOLOL\CHLORTHALIDONE
     Route: 065
  395. TENORETIC [Suspect]
     Active Substance: ATENOLOL\CHLORTHALIDONE
     Route: 065
  396. TENORETIC [Suspect]
     Active Substance: ATENOLOL\CHLORTHALIDONE
     Route: 065
  397. TENORETIC [Suspect]
     Active Substance: ATENOLOL\CHLORTHALIDONE
     Route: 065
  398. TENORETIC [Suspect]
     Active Substance: ATENOLOL\CHLORTHALIDONE
     Route: 065
  399. TENORETIC [Suspect]
     Active Substance: ATENOLOL\CHLORTHALIDONE
     Route: 065
  400. TENORETIC [Suspect]
     Active Substance: ATENOLOL\CHLORTHALIDONE
     Route: 065
  401. TENORETIC [Suspect]
     Active Substance: ATENOLOL\CHLORTHALIDONE
     Route: 065
  402. TENORETIC [Suspect]
     Active Substance: ATENOLOL\CHLORTHALIDONE
     Route: 065
  403. TENORETIC [Suspect]
     Active Substance: ATENOLOL\CHLORTHALIDONE
     Route: 065
  404. TENORETIC [Suspect]
     Active Substance: ATENOLOL\CHLORTHALIDONE
     Route: 065
  405. TENORETIC [Suspect]
     Active Substance: ATENOLOL\CHLORTHALIDONE
     Route: 065
  406. TENORETIC [Suspect]
     Active Substance: ATENOLOL\CHLORTHALIDONE
     Route: 065
  407. TENORETIC [Suspect]
     Active Substance: ATENOLOL\CHLORTHALIDONE
     Route: 065
  408. TENORETIC [Suspect]
     Active Substance: ATENOLOL\CHLORTHALIDONE
     Route: 065
  409. DULOXETINE [Suspect]
     Active Substance: DULOXETINE
     Indication: Migraine
     Route: 065
  410. DULOXETINE [Suspect]
     Active Substance: DULOXETINE
     Route: 065
  411. TOPAMAX [Suspect]
     Active Substance: TOPIRAMATE
     Indication: Product used for unknown indication
     Route: 065
  412. TOPIRAMATE [Suspect]
     Active Substance: TOPIRAMATE
     Indication: Migraine
     Route: 065
  413. TOPIRAMATE [Suspect]
     Active Substance: TOPIRAMATE
     Route: 065
  414. TOPIRAMATE [Suspect]
     Active Substance: TOPIRAMATE
     Route: 065
  415. TOPIRAMATE [Suspect]
     Active Substance: TOPIRAMATE
     Route: 065
  416. TOPIRAMATE [Suspect]
     Active Substance: TOPIRAMATE
     Route: 065
  417. TOPIRAMATE [Suspect]
     Active Substance: TOPIRAMATE
     Route: 065
  418. TOPIRAMATE [Suspect]
     Active Substance: TOPIRAMATE
     Route: 065
  419. TOPIRAMATE [Suspect]
     Active Substance: TOPIRAMATE
     Route: 065
  420. TOPIRAMATE [Suspect]
     Active Substance: TOPIRAMATE
     Route: 065
  421. TOPIRAMATE [Suspect]
     Active Substance: TOPIRAMATE
     Route: 065
  422. TOPIRAMATE [Suspect]
     Active Substance: TOPIRAMATE
     Route: 065
  423. TOPIRAMATE [Suspect]
     Active Substance: TOPIRAMATE
     Route: 065
  424. TORADOL [Suspect]
     Active Substance: KETOROLAC TROMETHAMINE
     Indication: Migraine
     Route: 065
  425. ACETAMINOPHEN\TRAMADOL [Suspect]
     Active Substance: ACETAMINOPHEN\TRAMADOL
     Indication: Migraine
     Route: 065
  426. ACETAMINOPHEN\TRAMADOL [Suspect]
     Active Substance: ACETAMINOPHEN\TRAMADOL
     Route: 065
  427. ACETAMINOPHEN\TRAMADOL [Suspect]
     Active Substance: ACETAMINOPHEN\TRAMADOL
     Route: 065
  428. TRAMADOL HYDROCHLORIDE [Suspect]
     Active Substance: TRAMADOL HYDROCHLORIDE
     Indication: Migraine
     Route: 065
  429. ACETAMINOPHEN\TRAMADOL [Suspect]
     Active Substance: ACETAMINOPHEN\TRAMADOL
     Indication: Migraine
     Route: 048
  430. ACETAMINOPHEN\TRAMADOL [Suspect]
     Active Substance: ACETAMINOPHEN\TRAMADOL
     Route: 065
  431. ACETAMINOPHEN\TRAMADOL [Suspect]
     Active Substance: ACETAMINOPHEN\TRAMADOL
     Route: 065
  432. TRIAMCINOLONE [Suspect]
     Active Substance: TRIAMCINOLONE
     Route: 065
  433. TRIAMCINOLONE [Suspect]
     Active Substance: TRIAMCINOLONE
     Route: 065
  434. TRIAMCINOLONE [Suspect]
     Active Substance: TRIAMCINOLONE
     Indication: Migraine
     Route: 065
  435. TYLENOL [Suspect]
     Active Substance: ACETAMINOPHEN
     Indication: Product used for unknown indication
     Route: 065
  436. TYLENOL [Suspect]
     Active Substance: ACETAMINOPHEN
     Route: 065
  437. TYLENOL [Suspect]
     Active Substance: ACETAMINOPHEN
     Route: 065
  438. TYLENOL [Suspect]
     Active Substance: ACETAMINOPHEN
     Route: 065
  439. VENLAFAXINE [Suspect]
     Active Substance: VENLAFAXINE HYDROCHLORIDE
     Indication: Migraine
     Route: 065
  440. VENLAFAXINE [Suspect]
     Active Substance: VENLAFAXINE HYDROCHLORIDE
     Route: 065
  441. VENLAFAXINE [Suspect]
     Active Substance: VENLAFAXINE HYDROCHLORIDE
     Route: 065
  442. VENLAFAXINE [Suspect]
     Active Substance: VENLAFAXINE HYDROCHLORIDE
     Route: 065
  443. VENLAFAXINE [Suspect]
     Active Substance: VENLAFAXINE HYDROCHLORIDE
     Route: 065
  444. VENLAFAXINE [Suspect]
     Active Substance: VENLAFAXINE HYDROCHLORIDE
     Route: 065
  445. VENLAFAXINE [Suspect]
     Active Substance: VENLAFAXINE HYDROCHLORIDE
     Route: 065
  446. VENLAFAXINE [Suspect]
     Active Substance: VENLAFAXINE HYDROCHLORIDE
     Route: 065
  447. VENLAFAXINE [Suspect]
     Active Substance: VENLAFAXINE HYDROCHLORIDE
     Route: 065
  448. VENLAFAXINE [Suspect]
     Active Substance: VENLAFAXINE HYDROCHLORIDE
     Route: 065
  449. VENLAFAXINE [Suspect]
     Active Substance: VENLAFAXINE HYDROCHLORIDE
     Route: 065
  450. VENLAFAXINE [Suspect]
     Active Substance: VENLAFAXINE HYDROCHLORIDE
     Route: 065
  451. DICLOFENAC DIETHYLAMINE [Suspect]
     Active Substance: DICLOFENAC DIETHYLAMINE
     Indication: Migraine
     Route: 065
  452. DICLOFENAC DIETHYLAMINE [Suspect]
     Active Substance: DICLOFENAC DIETHYLAMINE
     Route: 065
  453. ZOFRAN [Suspect]
     Active Substance: ONDANSETRON HYDROCHLORIDE
     Indication: Migraine
     Route: 065
  454. ZOFRAN [Suspect]
     Active Substance: ONDANSETRON HYDROCHLORIDE
     Route: 065
  455. ZOFRAN [Suspect]
     Active Substance: ONDANSETRON HYDROCHLORIDE
     Route: 065

REACTIONS (8)
  - Sedation [Unknown]
  - Hyperhidrosis [Unknown]
  - Nephrolithiasis [Unknown]
  - Nightmare [Unknown]
  - Nausea [Unknown]
  - Drug ineffective [Unknown]
  - Product use in unapproved indication [Unknown]
  - Off label use [Unknown]
